FAERS Safety Report 8115978-2 (Version None)
Quarter: 2011Q4

REPORT INFORMATION
  Report Type: 
  Country: None (occurrence: None)
  Receive Date: 20111227
  Receipt Date: 20110913
  Transmission Date: 20120403
  Serious: Yes (Other)
  Sender: FDA-Public Use
  Company Number: PHHY2011US49777

PATIENT
  Age: 60 Year
  Sex: Male
  Weight: 101.7 kg

DRUGS (3)
  1. GILENYA [Suspect]
     Indication: MULTIPLE SCLEROSIS RELAPSE
     Dosage: 0.5 MG, DAILY, ORAL
     Route: 048
     Dates: start: 20110524
  2. FAMPRIDINE (FAMPRIDINE) [Concomitant]
  3. ANTIBIOTICS (NO INGREDIENTS/SUBSTANCES) [Concomitant]

REACTIONS (5)
  - MALAISE [None]
  - ACNE [None]
  - HYPERTENSION [None]
  - EAR PAIN [None]
  - ASTHENIA [None]
